FAERS Safety Report 15246028 (Version 1)
Quarter: 2018Q3

REPORT INFORMATION
  Report Type: Spontaneous
  Country: JP (occurrence: JP)
  Receive Date: 20180806
  Receipt Date: 20180806
  Transmission Date: 20181010
  Serious: Yes (Hospitalization, Other)
  Sender: FDA-Public Use
  Company Number: JP-SA-2018SA123779

PATIENT
  Age: 71 Year
  Sex: Female
  Weight: 43 kg

DRUGS (8)
  1. ELPLAT [Suspect]
     Active Substance: OXALIPLATIN
     Dosage: 140 MG, QD
     Route: 041
     Dates: start: 20180327, end: 20180327
  2. ALOXI [Concomitant]
     Active Substance: PALONOSETRON HYDROCHLORIDE
     Dosage: UNK
     Dates: start: 20180327, end: 20180327
  3. AMLODIPINE BESILATE [Concomitant]
     Active Substance: AMLODIPINE BESYLATE
     Dosage: UNK
     Dates: start: 20180215
  4. DECADRON [DEXAMETHASONE SODIUM PHOSPHATE] [Concomitant]
  5. DECADRON [DEXAMETHASONE] [Concomitant]
     Dosage: UNK
     Dates: start: 20180328, end: 20180329
  6. BIOFERMIN [LACTOMIN] [Concomitant]
     Dosage: UNK
     Dates: start: 20180203, end: 20180414
  7. DAI KENCHU TO [Concomitant]
     Dosage: UNK
  8. CAPECITABINE. [Suspect]
     Active Substance: CAPECITABINE
     Dosage: UNK UNK,UNK
     Route: 048
     Dates: start: 20180327

REACTIONS (9)
  - Stomatitis [Recovered/Resolved]
  - Febrile neutropenia [Recovered/Resolved]
  - Fatigue [Recovered/Resolved]
  - Palmar-plantar erythrodysaesthesia syndrome [Unknown]
  - Ileus paralytic [Recovered/Resolved]
  - Diarrhoea [Recovered/Resolved]
  - Neuropathy peripheral [Unknown]
  - Vomiting [Unknown]
  - Decreased appetite [Recovered/Resolved]

NARRATIVE: CASE EVENT DATE: 20180408
